FAERS Safety Report 5000943-4 (Version None)
Quarter: 2006Q2

REPORT INFORMATION
  Report Type: 
  Country: None (occurrence: None)
  Receive Date: 20060512
  Receipt Date: 20051129
  Transmission Date: 20061013
  Serious: Yes (Hospitalization)
  Sender: FDA-Public Use
  Company Number: BE-ROCHE-427423

PATIENT
  Age: 48 Year
  Sex: Male
  Weight: 102 kg

DRUGS (5)
  1. ZENAPAX [Suspect]
     Dosage: FOR FIVE DOSES.
     Route: 042
     Dates: start: 20050727
  2. MYCOPHENOLATE MOFETIL [Suspect]
     Route: 065
  3. SIROLIMUS [Suspect]
     Route: 048
     Dates: start: 20050727
  4. PREDNISOLONE [Suspect]
     Route: 065
  5. METHYLPREDNISOLONE [Suspect]
     Route: 042

REACTIONS (3)
  - ESCHERICHIA URINARY TRACT INFECTION [None]
  - GRAFT COMPLICATION [None]
  - PYELONEPHRITIS [None]
